FAERS Safety Report 25372046 (Version 2)
Quarter: 2025Q2

REPORT INFORMATION
  Report Type: Spontaneous
  Country: LT (occurrence: LT)
  Receive Date: 20250529
  Receipt Date: 20250617
  Transmission Date: 20250717
  Serious: Yes (Hospitalization, Other)
  Sender: ABBVIE
  Company Number: LT-ABBVIE-6296209

PATIENT
  Age: 46 Year
  Sex: Female
  Weight: 65 kg

DRUGS (9)
  1. HUMIRA [Suspect]
     Active Substance: ADALIMUMAB
     Indication: Ankylosing spondylitis
     Route: 058
     Dates: start: 202306, end: 202406
  2. HUMIRA [Suspect]
     Active Substance: ADALIMUMAB
     Route: 058
     Dates: start: 20180516, end: 202008
  3. HUMIRA [Suspect]
     Active Substance: ADALIMUMAB
     Route: 058
     Dates: start: 20211217, end: 202301
  4. AZATHIOPRINE [Concomitant]
     Active Substance: AZATHIOPRINE
     Indication: Crohn^s disease
     Dosage: STOP DATE TEXT: ONGOING
     Route: 048
     Dates: start: 20210810
  5. METHOTREXATE [Concomitant]
     Active Substance: METHOTREXATE
     Indication: Ankylosing spondylitis
     Route: 048
     Dates: start: 20180516, end: 20210810
  6. COSENTYX [Concomitant]
     Active Substance: SECUKINUMAB
     Indication: Product used for unknown indication
     Dates: end: 202108
  7. COSENTYX [Concomitant]
     Active Substance: SECUKINUMAB
     Indication: Product used for unknown indication
     Dosage: DURATION TEXT: 5 TIMES
     Dates: start: 20200906
  8. IBUPROFEN [Concomitant]
     Active Substance: IBUPROFEN
     Indication: Ankylosing spondylitis
     Route: 048
     Dates: start: 202305, end: 202503
  9. PREDNISOLONE [Concomitant]
     Active Substance: PREDNISOLONE
     Indication: Product used for unknown indication
     Dosage: 30MG /DAY -} 15 MG/DAY
     Dates: start: 202108

REACTIONS (15)
  - Colitis [Unknown]
  - Iridocyclitis [Recovered/Resolved]
  - Abdominal pain lower [Recovered/Resolved]
  - Pneumonia [Recovered/Resolved]
  - Lymphadenopathy [Recovered/Resolved]
  - Asthenia [Recovered/Resolved]
  - Terminal ileitis [Not Recovered/Not Resolved]
  - Arthralgia [Unknown]
  - Abdominal distension [Recovered/Resolved]
  - Crohn^s disease [Recovering/Resolving]
  - Haematochezia [Recovered/Resolved]
  - Tenosynovitis [Unknown]
  - Thermal burn [Unknown]
  - Impaired healing [Unknown]
  - Therapeutic product effect incomplete [Unknown]

NARRATIVE: CASE EVENT DATE: 20201023
